FAERS Safety Report 10851202 (Version 2)
Quarter: 2015Q1

REPORT INFORMATION
  Report Type: Spontaneous
  Country: US (occurrence: US)
  Receive Date: 20150222
  Receipt Date: 20150222
  Transmission Date: 20150721
  Serious: No
  Sender: FDA-Public Use
  Company Number: US-ALLERGAN-1408885US

PATIENT
  Sex: Female

DRUGS (6)
  1. WELLBUTRIN [Concomitant]
     Active Substance: BUPROPION HYDROCHLORIDE
     Dosage: 150 MG, QD
     Route: 048
  2. SUMATRIPTAN. [Concomitant]
     Active Substance: SUMATRIPTAN
     Dosage: UNK UNK, PRN
  3. ZOLPIDEM [Concomitant]
     Active Substance: ZOLPIDEM\ZOLPIDEM TARTRATE
     Dosage: 5 MG, QHS
     Route: 048
  4. TOPAMAX [Concomitant]
     Active Substance: TOPIRAMATE
     Dosage: 100 MG, QD
     Route: 048
  5. BOTOX [Suspect]
     Active Substance: ONABOTULINUMTOXINA
     Indication: MIGRAINE
     Dosage: 155 UNITS, SINGLE
     Route: 030
     Dates: start: 20140414, end: 20140414
  6. AMITRIPTYLINE [Concomitant]
     Active Substance: AMITRIPTYLINE
     Dosage: 25 MG, QD
     Route: 048

REACTIONS (3)
  - Lacrimation decreased [Not Recovered/Not Resolved]
  - Secretion discharge [Unknown]
  - Dry eye [Not Recovered/Not Resolved]
